FAERS Safety Report 18776287 (Version 1)
Quarter: 2021Q1

REPORT INFORMATION
  Report Type: Other
  Country: US (occurrence: US)
  Receive Date: 20210123
  Receipt Date: 20210123
  Transmission Date: 20210419
  Serious: Yes (Other)
  Sender: FDA-Public Use
  Company Number: US-ROCHE-2753543

PATIENT
  Age: 29 Year
  Sex: Female

DRUGS (6)
  1. TOCILIZUMAB. [Suspect]
     Active Substance: TOCILIZUMAB
     Indication: JUVENILE IDIOPATHIC ARTHRITIS
     Route: 042
  2. BUCILLAMINE [Concomitant]
     Active Substance: BUCILLAMINE
  3. TRIAZOLAM. [Concomitant]
     Active Substance: TRIAZOLAM
  4. CELECOXIB. [Concomitant]
     Active Substance: CELECOXIB
  5. LANSOPRAZOLE. [Concomitant]
     Active Substance: LANSOPRAZOLE
  6. PREDNISOLONE. [Concomitant]
     Active Substance: PREDNISOLONE

REACTIONS (1)
  - Hepatitis infectious mononucleosis [Unknown]
